FAERS Safety Report 9823613 (Version 3)
Quarter: 2014Q4

REPORT INFORMATION
  Report Type: Report from Study
  Country: KR (occurrence: KR)
  Receive Date: 20140116
  Receipt Date: 20141230
  Transmission Date: 20150529
  Serious: No
  Sender: FDA-Public Use
  Company Number: PHHY2014KR005003

PATIENT
  Age: 78 Year
  Sex: Female

DRUGS (13)
  1. MAGNESIUM OXIDE. [Concomitant]
     Active Substance: MAGNESIUM OXIDE
     Dosage: 2250 UNK, UNK
     Route: 048
     Dates: start: 20131213, end: 20131226
  2. RENOX [Concomitant]
     Indication: PERIODONTITIS
     Dosage: 180 MG, UNK
     Route: 048
     Dates: start: 20131216, end: 20131220
  3. SOXINASE [Concomitant]
     Indication: PERIODONTITIS
     Dosage: 3 TSP, UNK
     Route: 048
     Dates: start: 20131216, end: 20131220
  4. MEGESTROL ACETATE. [Concomitant]
     Active Substance: MEGESTROL ACETATE
     Indication: WEIGHT DECREASED
     Dosage: 5.2 ML, UNK
     Route: 048
     Dates: start: 20131213
  5. AMN107 [Suspect]
     Active Substance: NILOTINIB
     Indication: CHRONIC MYELOID LEUKAEMIA
     Dosage: 600 MG, PER DAY
     Route: 048
     Dates: start: 20131107
  6. MAGNESIUM OXIDE. [Concomitant]
     Active Substance: MAGNESIUM OXIDE
     Dosage: 1500 MG
     Route: 048
     Dates: start: 20131114, end: 20131211
  7. MAGNESIUM OXIDE. [Concomitant]
     Active Substance: MAGNESIUM OXIDE
     Indication: GASTROINTESTINAL DISORDER
     Dosage: 1000 MG, UNK
     Route: 048
     Dates: start: 20131111, end: 20131113
  8. VESICARE [Concomitant]
     Active Substance: SOLIFENACIN SUCCINATE
     Indication: NEUROGENIC BLADDER
     Dosage: 5MG
     Route: 048
     Dates: start: 20131029, end: 20131216
  9. AUGMENTIN [Concomitant]
     Active Substance: AMOXICILLIN\CLAVULANATE POTASSIUM
     Indication: PERIODONTITIS
     Dosage: 1125 MG, UNK
     Route: 048
     Dates: start: 20131216, end: 20131220
  10. DUPHALAC [Concomitant]
     Active Substance: LACTULOSE
     Indication: CONSTIPATION
     Dosage: 20 ML, UNK
     Route: 048
     Dates: start: 20131114
  11. VESICARE [Concomitant]
     Active Substance: SOLIFENACIN SUCCINATE
     Dosage: 10 MG, UNK
     Route: 048
     Dates: start: 20131220
  12. CRAVIT [Concomitant]
     Active Substance: LEVOFLOXACIN
     Indication: NEUROGENIC BLADDER
     Dosage: 500 MG, UNK
     Route: 048
     Dates: start: 20131119, end: 20131121
  13. GANATON [Concomitant]
     Active Substance: ITOPRIDE
     Indication: GASTROINTESTINAL DISORDER
     Dosage: 150 MG, UNK
     Route: 048
     Dates: start: 20131114, end: 20131211

REACTIONS (1)
  - Cataract [Unknown]

NARRATIVE: CASE EVENT DATE: 20131226
